FAERS Safety Report 23246264 (Version 1)
Quarter: 2023Q4

REPORT INFORMATION
  Report Type: Spontaneous
  Country: GB (occurrence: GB)
  Receive Date: 20231130
  Receipt Date: 20231130
  Transmission Date: 20240110
  Serious: Yes (Other)
  Sender: FDA-Public Use
  Company Number: None

PATIENT
  Age: 63 Year
  Sex: Female
  Weight: 61 kg

DRUGS (9)
  1. DOXYCYCLINE [Suspect]
     Active Substance: DOXYCYCLINE
     Indication: Infection
     Dosage: 100 MILLIGRAM (TAKE TWO NOW THEN ONE DAILY FOR 4 DAYS TO TREAT INFECTION)
     Route: 048
     Dates: start: 20231120
  2. ACYCLOVIR [Concomitant]
     Active Substance: ACYCLOVIR
     Indication: Prophylaxis
     Dosage: 1 DOSAGE FORM, QD (FOR PREVENTION)
     Route: 065
     Dates: start: 20230821
  3. CALCIPOTRIENE [Concomitant]
     Active Substance: CALCIPOTRIENE
     Dosage: 1 DOSAGE FORM, QD (APPLY ONCE DAILY)
     Route: 061
     Dates: start: 20220615
  4. ESTRADIOL [Concomitant]
     Active Substance: ESTRADIOL
     Dosage: 1 DOSAGE FORM, QD (APPLY ONCE DAILY)
     Route: 061
     Dates: start: 20230426
  5. FEXOFENADINE [Concomitant]
     Active Substance: FEXOFENADINE HYDROCHLORIDE
     Dosage: 1 DOSAGE FORM, QD
     Route: 065
     Dates: start: 20230111
  6. FLUOXETINE [Concomitant]
     Active Substance: FLUOXETINE HYDROCHLORIDE
     Indication: Depressed mood
     Dosage: 1 DOSAGE FORM, QD (WITH FOOD)
     Route: 048
     Dates: start: 20230717
  7. PROGESTERONE [Concomitant]
     Active Substance: PROGESTERONE
     Dosage: USE AS DIRECTED
     Route: 065
     Dates: start: 20230426
  8. RIZATRIPTAN [Concomitant]
     Active Substance: RIZATRIPTAN
     Indication: Migraine
     Dosage: 1 DOSAGE FORM (1 TABLET AT ONSET OF MIGRAINE, REPEAT AFTER 2 H)
     Route: 065
     Dates: start: 20230111
  9. ZEROCREAM [Concomitant]
     Dosage: APPLY AS DIRECTED. THIS IS A PARAFFIN-BASED PRO
     Route: 061
     Dates: start: 20230111

REACTIONS (1)
  - Psoriasis [Unknown]
